FAERS Safety Report 6927428-X (Version None)
Quarter: 2010Q3

REPORT INFORMATION
  Report Type: 
  Country: None (occurrence: None)
  Receive Date: 20100817
  Receipt Date: 20100806
  Transmission Date: 20110219
  Serious: Yes (Other)
  Sender: FDA-Public Use
  Company Number: US-JNJFOC-20100606599

PATIENT
  Sex: Male
  Weight: 79.38 kg

DRUGS (5)
  1. DURAGESIC-100 [Suspect]
     Indication: BACK PAIN
     Route: 062
  2. DURAGESIC-100 [Suspect]
     Dosage: NDC: 5045809305
     Route: 062
  3. LYRICA [Suspect]
     Indication: NEURALGIA
     Route: 048
  4. OXYCODONE [Concomitant]
     Indication: BREAKTHROUGH PAIN
     Route: 048
  5. TEMAZEPAM [Concomitant]
     Indication: SLEEP DISORDER THERAPY
     Route: 048

REACTIONS (10)
  - AMNESIA [None]
  - APPARENT DEATH [None]
  - DRUG WITHDRAWAL SYNDROME [None]
  - HEART RATE INCREASED [None]
  - HYPERHIDROSIS [None]
  - INADEQUATE ANALGESIA [None]
  - MIGRAINE [None]
  - PRODUCT QUALITY ISSUE [None]
  - RESPIRATORY RATE DECREASED [None]
  - TINNITUS [None]
